FAERS Safety Report 6027996-9 (Version None)
Quarter: 2008Q4

REPORT INFORMATION
  Report Type: 
  Country: None (occurrence: None)
  Receive Date: 20081230
  Receipt Date: 20081208
  Transmission Date: 20090506
  Serious: Yes (Hospitalization, Other)
  Sender: FDA-Public Use
  Company Number: WAES 0812BEL00004

PATIENT
  Age: 58 Year
  Sex: Female

DRUGS (17)
  1. VYTORIN [Suspect]
     Indication: HYPERCHOLESTEROLAEMIA
     Route: 048
  2. TAB MYCOPHENOLATE SODIUM [Suspect]
     Indication: RENAL TRANSPLANT
     Dosage: 1440 MG/DAILY
     Route: 048
     Dates: start: 20061225
  3. ALLOPURINOL [Concomitant]
  4. ASPIRIN [Concomitant]
  5. ATENOLOL [Concomitant]
  6. CALCIUM CARBONATE [Concomitant]
  7. CLOPIDOGREL BISULFATE [Concomitant]
  8. CYCLOSPORINE [Concomitant]
  9. ESCITALOPRAM OXALATE [Concomitant]
  10. FUROSEMIDE [Concomitant]
  11. LERCANIDIPINE HYDROCHLORIDE [Concomitant]
  12. LEVOTHYROXINE SODIUM [Concomitant]
  13. LORMETAZEPAM [Concomitant]
  14. METHYLPREDNISOLONE 16MG TAB [Concomitant]
  15. MOXONIDINE [Concomitant]
  16. RAMIPRIL [Concomitant]
  17. REPAGLINIDE [Concomitant]

REACTIONS (8)
  - ANOREXIA [None]
  - FATIGUE [None]
  - HEPATIC ENZYME INCREASED [None]
  - HYPOGLYCAEMIA [None]
  - MALAISE [None]
  - RHABDOMYOLYSIS [None]
  - SYNCOPE [None]
  - WEIGHT DECREASED [None]
